FAERS Safety Report 7490840-7 (Version None)
Quarter: 2011Q2

REPORT INFORMATION
  Report Type: 
  Country: None (occurrence: None)
  Receive Date: 20110517
  Receipt Date: 20110517
  Transmission Date: 20111010
  Serious: No
  Sender: FDA-Public Use
  Company Number: None

PATIENT

DRUGS (1)
  1. TYLENOL-500 [Suspect]

REACTIONS (2)
  - PRODUCT QUALITY ISSUE [None]
  - LIQUID PRODUCT PHYSICAL ISSUE [None]
